FAERS Safety Report 6268049-4 (Version None)
Quarter: 2009Q3

REPORT INFORMATION
  Report Type: 
  Country: None (occurrence: None)
  Receive Date: 20090713
  Receipt Date: 20090626
  Transmission Date: 20100115
  Serious: No
  Sender: FDA-Public Use
  Company Number: 2009-199573-NL

PATIENT

DRUGS (1)
  1. VECURONIUM BROMIDE [Suspect]

REACTIONS (1)
  - RHABDOMYOLYSIS [None]
